FAERS Safety Report 4984959-X (Version None)
Quarter: 2006Q2

REPORT INFORMATION
  Report Type: 
  Country: None (occurrence: None)
  Receive Date: 20060426
  Receipt Date: 20060426
  Transmission Date: 20061013
  Serious: Yes (Life-Threatening)
  Sender: FDA-Public Use
  Company Number: None

PATIENT
  Sex: Female

DRUGS (1)
  1. RITUXAN [Suspect]
     Dosage: 730 MG   IV
     Route: 042
     Dates: start: 20050427

REACTIONS (2)
  - DYSPNOEA [None]
  - INFUSION RELATED REACTION [None]
